FAERS Safety Report 14740664 (Version 1)
Quarter: 2018Q2

REPORT INFORMATION
  Report Type: Spontaneous
  Country: US (occurrence: US)
  Receive Date: 20180404
  Receipt Date: 20180404
  Transmission Date: 20180711
  Serious: Yes (Other)
  Sender: FDA-Public Use
  Company Number: None

PATIENT
  Sex: Male

DRUGS (11)
  1. INTROLITE [Concomitant]
  2. IRON [Concomitant]
     Active Substance: IRON
  3. POTASSIUM [Concomitant]
     Active Substance: POTASSIUM
  4. CLONIDINE. [Concomitant]
     Active Substance: CLONIDINE
  5. VITAMIN D3 [Concomitant]
     Active Substance: CHOLECALCIFEROL
  6. GABAPENTIN. [Concomitant]
     Active Substance: GABAPENTIN
  7. MAGNESIUM [Concomitant]
     Active Substance: MAGNESIUM
  8. LONSURF [Suspect]
     Active Substance: TIPIRACIL HYDROCHLORIDE\TRIFLURIDINE
     Indication: NEOPLASM MALIGNANT
     Dosage: ?          OTHER FREQUENCY:28 DAY SUPPLY;?
     Route: 048
     Dates: start: 20171110
  9. PANTOPRAZOLE [Concomitant]
     Active Substance: PANTOPRAZOLE
  10. LONSURF [Suspect]
     Active Substance: TIPIRACIL HYDROCHLORIDE\TRIFLURIDINE
     Indication: NEOPLASM MALIGNANT
     Dosage: ?          OTHER FREQUENCY:28 DAY SUPPLY;?
     Route: 048
     Dates: start: 20171110
  11. ELIQUIS [Concomitant]
     Active Substance: APIXABAN

REACTIONS (1)
  - Malignant neoplasm progression [None]
